FAERS Safety Report 6575252-2 (Version None)
Quarter: 2010Q1

REPORT INFORMATION
  Report Type: 
  Country: None (occurrence: None)
  Receive Date: 20100209
  Receipt Date: 20100129
  Transmission Date: 20100710
  Serious: Yes (Hospitalization)
  Sender: FDA-Public Use
  Company Number: JP-ROCHE-625540

PATIENT
  Sex: Male

DRUGS (19)
  1. TOCILIZUMAB [Suspect]
     Indication: RHEUMATOID ARTHRITIS
     Route: 041
     Dates: start: 20081209, end: 20081209
  2. TOCILIZUMAB [Suspect]
     Route: 041
     Dates: start: 20090106, end: 20090106
  3. TOCILIZUMAB [Suspect]
     Route: 041
     Dates: start: 20090203, end: 20090203
  4. TOCILIZUMAB [Suspect]
     Route: 041
     Dates: start: 20090327, end: 20090327
  5. TOCILIZUMAB [Suspect]
     Route: 041
     Dates: start: 20090421, end: 20090421
  6. TOCILIZUMAB [Suspect]
     Route: 041
     Dates: start: 20090526, end: 20090526
  7. TOCILIZUMAB [Suspect]
     Route: 041
     Dates: start: 20090623
  8. PREDONINE [Suspect]
     Indication: RHEUMATOID ARTHRITIS
     Route: 048
     Dates: start: 20081125, end: 20090131
  9. PREDONINE [Suspect]
     Route: 048
     Dates: start: 20090201, end: 20090406
  10. PREDONINE [Suspect]
     Route: 048
     Dates: start: 20090407, end: 20090420
  11. PREDONINE [Suspect]
     Route: 048
     Dates: start: 20090421, end: 20090518
  12. PREDONINE [Suspect]
     Route: 048
     Dates: start: 20090519, end: 20090622
  13. PREDONINE [Suspect]
     Route: 048
     Dates: start: 20090623
  14. RHEUMATREX [Suspect]
     Indication: RHEUMATOID ARTHRITIS
     Route: 048
  15. OPALMON [Concomitant]
     Dosage: DRUG: OPALMON(LIMAPROST ALFADEX)
     Route: 048
     Dates: start: 20080729, end: 20090309
  16. MEVALOTIN [Concomitant]
     Dosage: FORM: PERORAL AGENT, DRUG:MEVALOTIN(PRAVASTATIN SODIUM)
     Route: 048
     Dates: start: 20080729, end: 20090309
  17. PARIET [Concomitant]
     Dosage: DRUG: PARIET(SODIUM RABEPRAZOLE)
     Route: 048
     Dates: start: 20081125
  18. NOVORAPID [Concomitant]
     Dosage: DRUG:NOVORAPID(INSULIN ASPART(GENETICAL RECOMBINATION))
     Route: 058
  19. LEVEMIR [Concomitant]
     Dosage: DRUG:LEVEMIR(INSULIN DETEMIR(GENETICAL RECOMBINATION))
     Route: 058

REACTIONS (4)
  - DRUG INEFFECTIVE [None]
  - PNEUMONIA [None]
  - RHEUMATOID ARTHRITIS [None]
  - WHITE BLOOD CELL COUNT INCREASED [None]
